FAERS Safety Report 16950754 (Version 1)
Quarter: 2019Q4

REPORT INFORMATION
  Report Type: Spontaneous
  Country: US (occurrence: US)
  Receive Date: 20191023
  Receipt Date: 20191023
  Transmission Date: 20200122
  Serious: No
  Sender: FDA-Public Use
  Company Number: US-ALIMERA SCIENCES INC.-US-IL-2018-004175

PATIENT
  Sex: Male

DRUGS (3)
  1. ILUVIEN [Suspect]
     Active Substance: FLUOCINOLONE ACETONIDE
     Dosage: 0.25 ?G, QD -RIGHT EYE, THE IMPLANT WAS REMOVED
     Route: 031
     Dates: start: 20180515
  2. ILUVIEN [Suspect]
     Active Substance: FLUOCINOLONE ACETONIDE
     Dosage: 0.25 ?G, QD, RIGHT EYE, REPEAT ILUVIEN PELLET INTO THE RIGHT EYE
     Route: 031
     Dates: start: 20181214
  3. ILUVIEN [Suspect]
     Active Substance: FLUOCINOLONE ACETONIDE
     Indication: PRODUCT USED FOR UNKNOWN INDICATION
     Dosage: 0.25 ?G, QD -LEFT EYE
     Route: 031
     Dates: start: 201805

REACTIONS (2)
  - Medication error [Recovered/Resolved]
  - Medical device removal [Recovered/Resolved]

NARRATIVE: CASE EVENT DATE: 201805
